FAERS Safety Report 7980469-6 (Version None)
Quarter: 2011Q4

REPORT INFORMATION
  Report Type: 
  Country: None (occurrence: None)
  Receive Date: 20111214
  Receipt Date: 20111212
  Transmission Date: 20120403
  Serious: Yes (Other)
  Sender: FDA-Public Use
  Company Number: US-GLAXOSMITHKLINE-A0957700A

PATIENT
  Sex: Male

DRUGS (2)
  1. NO CONCURRENT MEDICATION [Concomitant]
  2. REQUIP XL [Suspect]
     Indication: PARKINSON'S DISEASE
     Route: 048

REACTIONS (3)
  - PROSTATIC SPECIFIC ANTIGEN INCREASED [None]
  - BLOOD TESTOSTERONE INCREASED [None]
  - HYPERSEXUALITY [None]
